FAERS Safety Report 7897717-3 (Version None)
Quarter: 2011Q4

REPORT INFORMATION
  Report Type: 
  Country: None (occurrence: None)
  Receive Date: 20111107
  Receipt Date: 20111103
  Transmission Date: 20120403
  Serious: Yes (Other)
  Sender: FDA-Public Use
  Company Number: US-PFIZER INC-2011269367

PATIENT
  Sex: Female

DRUGS (4)
  1. ASPIRIN [Concomitant]
     Indication: FLUSHING
     Dosage: UNK
  2. LIPITOR [Suspect]
     Dosage: 40 MG, UNK
  3. TRICOR [Suspect]
     Dosage: UNK
  4. NIASPAN [Suspect]
     Indication: FLUSHING
     Dosage: UNK

REACTIONS (3)
  - SWELLING [None]
  - MYALGIA [None]
  - RASH MACULAR [None]
